FAERS Safety Report 19867699 (Version 1)
Quarter: 2021Q3

REPORT INFORMATION
  Report Type: Spontaneous
  Country: US (occurrence: US)
  Receive Date: 20210922
  Receipt Date: 20210922
  Transmission Date: 20211014
  Serious: No
  Sender: FDA-Public Use
  Company Number: US-PFIZER INC-2021270414

PATIENT
  Age: 13 Year
  Sex: Male
  Weight: 44.44 kg

DRUGS (1)
  1. GENOTROPIN [Suspect]
     Active Substance: SOMATROPIN
     Indication: GROWTH HORMONE DEFICIENCY
     Dosage: 1.2 MG, DAILY
     Dates: start: 201906

REACTIONS (4)
  - Device difficult to use [Unknown]
  - Device mechanical issue [Unknown]
  - Incorrect dose administered by product [Unknown]
  - Expired device used [Unknown]
